FAERS Safety Report 9850033 (Version 1)
Quarter: 2014Q1

REPORT INFORMATION
  Report Type: Spontaneous
  Country: US (occurrence: None)
  Receive Date: 20140127
  Receipt Date: 20140127
  Transmission Date: 20141002
  Serious: Yes (Other)
  Sender: FDA-Public Use
  Company Number: None

PATIENT
  Age: 66 Year
  Sex: Male
  Weight: 77.11 kg

DRUGS (5)
  1. PLAVIX [Suspect]
     Indication: CEREBROVASCULAR ACCIDENT PROPHYLAXIS
     Dosage: BY MOUTH
     Dates: start: 20130603, end: 20130610
  2. CELEXA TABLETS [Concomitant]
  3. LITHIUM CARBONATE [Concomitant]
  4. ARICEPT TABLETS [Concomitant]
  5. NIACIN [Concomitant]

REACTIONS (1)
  - Somnolence [None]
